FAERS Safety Report 13708625 (Version 2)
Quarter: 2017Q3

REPORT INFORMATION
  Report Type: Spontaneous
  Country: US (occurrence: US)
  Receive Date: 20170630
  Receipt Date: 20170710
  Transmission Date: 20171127
  Serious: Yes (Death, Hospitalization)
  Sender: FDA-Public Use
  Company Number: US-ABBVIE-17P-163-2023951-00

PATIENT
  Age: 60 Year
  Sex: Female

DRUGS (2)
  1. VENCLEXTA [Suspect]
     Active Substance: VENETOCLAX
     Route: 048
     Dates: start: 201706, end: 201706
  2. VENCLEXTA [Suspect]
     Active Substance: VENETOCLAX
     Indication: CHRONIC LYMPHOCYTIC LEUKAEMIA
     Route: 048
     Dates: start: 20170609, end: 201706

REACTIONS (8)
  - Hyperammonaemia [Fatal]
  - Hyperkalaemia [Fatal]
  - Hypotension [Fatal]
  - Mental status changes [Fatal]
  - Chronic lymphocytic leukaemia [Fatal]
  - Multiple organ dysfunction syndrome [Fatal]
  - Hypercalcaemia [Fatal]
  - Hepatic enzyme increased [Fatal]

NARRATIVE: CASE EVENT DATE: 201706
